FAERS Safety Report 8716744 (Version 2)
Quarter: 2012Q4

REPORT INFORMATION
  Report Type: 
  Country: US (occurrence: US)
  Receive Date: 20120810
  Receipt Date: 20120919
  Transmission Date: 20130627
  Serious: No
  Sender: FDA-Public Use
  Company Number: US-PFIZER INC-2012193311

PATIENT
  Age: 33 Year
  Sex: Female
  Weight: 68.03 kg

DRUGS (13)
  1. PREMARIN [Suspect]
     Indication: HORMONE REPLACEMENT THERAPY
     Dosage: 0.45 mg, daily
     Route: 048
     Dates: start: 2006
  2. PREMARIN [Suspect]
     Dosage: 0.9 mg, daily
     Route: 048
  3. PREMARIN [Suspect]
     Dosage: 1.25 mg, daily
     Route: 048
     Dates: end: 2012
  4. BENADRYL [Suspect]
     Indication: SLEEP DISORDER
     Dosage: UNK
     Dates: start: 2012, end: 2012
  5. MULTIVITAMIN [Suspect]
     Indication: HOT FLUSH
     Dosage: UNK
     Dates: start: 2012
  6. MULTIVITAMIN [Suspect]
     Indication: NIGHT SWEATS
  7. MULTIVITAMIN [Suspect]
     Indication: SLEEP DISORDER
  8. MULTIVITAMIN [Suspect]
     Indication: WEIGHT INCREASED
  9. BLACK COHOSH [Suspect]
     Indication: HOT FLUSH
     Dosage: UNK
     Dates: start: 2012
  10. BLACK COHOSH [Suspect]
     Indication: NIGHT SWEATS
  11. BLACK COHOSH [Suspect]
     Indication: SLEEP DISORDER
  12. BLACK COHOSH [Suspect]
     Indication: WEIGHT INCREASED
  13. ALEVE [Concomitant]
     Indication: MIGRAINE
     Dosage: 220 mg, as needed

REACTIONS (6)
  - Weight increased [Not Recovered/Not Resolved]
  - Hot flush [Not Recovered/Not Resolved]
  - Night sweats [Not Recovered/Not Resolved]
  - Insomnia [Not Recovered/Not Resolved]
  - Somnolence [Unknown]
  - Drug ineffective [Unknown]
